FAERS Safety Report 7994517-0 (Version None)
Quarter: 2011Q4

REPORT INFORMATION
  Report Type: 
  Country: None (occurrence: None)
  Receive Date: 20111220
  Receipt Date: 20111212
  Transmission Date: 20120403
  Serious: Yes (Hospitalization)
  Sender: FDA-Public Use
  Company Number: US-SANOFI-AVENTIS-2011SA063537

PATIENT
  Age: 77 Year
  Sex: Male

DRUGS (15)
  1. ASPIRIN [Concomitant]
  2. ARICEPT [Concomitant]
  3. LISINOPRIL [Concomitant]
  4. PLACEBO [Suspect]
     Indication: TYPE 2 DIABETES MELLITUS
     Route: 048
     Dates: start: 20101021
  5. DIPHENHYDRAMINE HCL [Concomitant]
  6. DIGOXIN [Suspect]
     Indication: CARDIAC FAILURE CONGESTIVE
     Route: 048
  7. COUMADIN [Concomitant]
  8. NOVOLOG [Concomitant]
     Dates: start: 20050601
  9. COREG [Suspect]
     Indication: HYPERTENSION
     Route: 048
  10. ATIVAN [Concomitant]
  11. LASIX [Suspect]
     Indication: HYPERTENSION
     Route: 048
     Dates: end: 20111022
  12. INVESTIGATIONAL DRUG [Suspect]
     Indication: TYPE 2 DIABETES MELLITUS
     Route: 048
     Dates: start: 20101021, end: 20110829
  13. LEXAPRO [Concomitant]
  14. LANTUS [Concomitant]
     Dates: start: 20050701
  15. ATORVASTATIN [Concomitant]

REACTIONS (1)
  - ANKLE FRACTURE [None]
